FAERS Safety Report 9136692 (Version 1)
Quarter: 2013Q1

REPORT INFORMATION
  Report Type: Spontaneous
  Country: US (occurrence: US)
  Receive Date: 20130304
  Receipt Date: 20130304
  Transmission Date: 20140127
  Serious: No
  Sender: FDA-Public Use
  Company Number: US-ABBOTT-12P-163-0912422-00

PATIENT
  Sex: Male

DRUGS (2)
  1. ANDROGEL 1% [Suspect]
     Indication: BLOOD TESTOSTERONE DECREASED
     Dosage: PRESCRIBED TO TAKE ONCE DAILY BUT TAKING ONCE WEEKLY AFTER A BATH.
     Route: 061
  2. ANDROGEL 1% [Suspect]
     Dosage: NOT SURE BUT TAKING MORE THAN 4 PUMPS BECAUSE IT^S ENOUGH TO COVER HIS BODY HEAD TO TOE.
     Route: 061

REACTIONS (4)
  - Blood testosterone decreased [Not Recovered/Not Resolved]
  - Libido decreased [Not Recovered/Not Resolved]
  - Incorrect route of drug administration [Not Recovered/Not Resolved]
  - Inappropriate schedule of drug administration [Not Recovered/Not Resolved]
